FAERS Safety Report 19818788 (Version 1)
Quarter: 2021Q3

REPORT INFORMATION
  Report Type: Spontaneous
  Country: CA (occurrence: CA)
  Receive Date: 20210912
  Receipt Date: 20210912
  Transmission Date: 20211014
  Serious: Yes (Life-Threatening, Hospitalization)
  Sender: FDA-Public Use
  Company Number: CA-TEVA-2021-CA-1951099

PATIENT
  Age: 56 Year
  Sex: Female
  Weight: 67 kg

DRUGS (31)
  1. CARBOPLATIN. [Suspect]
     Active Substance: CARBOPLATIN
     Indication: METASTASES TO MOUTH
  2. PACLITAXEL INJECTION [Suspect]
     Active Substance: PACLITAXEL
     Indication: METASTASES TO BONE
  3. HUMALOG [Concomitant]
     Active Substance: INSULIN LISPRO
  4. INVOKANA [Concomitant]
     Active Substance: CANAGLIFLOZIN
  5. PACLITAXEL INJECTION [Suspect]
     Active Substance: PACLITAXEL
     Indication: METASTASES TO MOUTH
  6. PACLITAXEL INJECTION [Suspect]
     Active Substance: PACLITAXEL
     Indication: METASTASES TO CENTRAL NERVOUS SYSTEM
  7. METOCLOPRAMIDE. [Concomitant]
     Active Substance: METOCLOPRAMIDE
  8. MORPHINE [Concomitant]
     Active Substance: MORPHINE
  9. CARBOPLATIN. [Suspect]
     Active Substance: CARBOPLATIN
     Indication: METASTASES TO LUNG
  10. CARBOPLATIN. [Suspect]
     Active Substance: CARBOPLATIN
     Indication: METASTASES TO CENTRAL NERVOUS SYSTEM
  11. CALCIUM CARBONATE. [Concomitant]
     Active Substance: CALCIUM CARBONATE
  12. DEXAMETHASONE. [Concomitant]
     Active Substance: DEXAMETHASONE
  13. FILGRASTIM [Concomitant]
     Active Substance: FILGRASTIM
  14. HUMULIN R [Concomitant]
     Active Substance: INSULIN HUMAN
  15. ONDANSETRON [Concomitant]
     Active Substance: ONDANSETRON
  16. ELIQUIS [Concomitant]
     Active Substance: APIXABAN
  17. PANTOPRAZOLE [Concomitant]
     Active Substance: PANTOPRAZOLE
  18. RAMIPRIL. [Concomitant]
     Active Substance: RAMIPRIL
     Route: 065
  19. VALACYCLOVIR [Concomitant]
     Active Substance: VALACYCLOVIR HYDROCHLORIDE
  20. CARBOPLATIN. [Suspect]
     Active Substance: CARBOPLATIN
     Indication: SQUAMOUS CELL CARCINOMA OF THE ORAL CAVITY
     Route: 042
  21. PACLITAXEL INJECTION [Suspect]
     Active Substance: PACLITAXEL
     Indication: METASTASES TO LYMPH NODES
  22. PACLITAXEL INJECTION [Suspect]
     Active Substance: PACLITAXEL
     Indication: METASTASES TO LUNG
  23. LORAZEPAM. [Concomitant]
     Active Substance: LORAZEPAM
  24. CARBOPLATIN. [Suspect]
     Active Substance: CARBOPLATIN
     Indication: METASTASES TO LYMPH NODES
  25. GLICLAZIDE MR [Concomitant]
     Active Substance: GLICLAZIDE
  26. NYSTATIN. [Concomitant]
     Active Substance: NYSTATIN
  27. HYDROCHLOROTHIAZIDE. [Concomitant]
     Active Substance: HYDROCHLOROTHIAZIDE
  28. LEVOTHYROXINE. [Concomitant]
     Active Substance: LEVOTHYROXINE
  29. CARBOPLATIN. [Suspect]
     Active Substance: CARBOPLATIN
     Indication: METASTASES TO BONE
  30. PACLITAXEL INJECTION [Suspect]
     Active Substance: PACLITAXEL
     Indication: SQUAMOUS CELL CARCINOMA OF THE ORAL CAVITY
     Route: 042
  31. CLOTRIMAZOLE. [Concomitant]
     Active Substance: CLOTRIMAZOLE

REACTIONS (2)
  - Neutropenia [Recovered/Resolved]
  - Escherichia bacteraemia [Recovered/Resolved]
